FAERS Safety Report 6020375-X (Version None)
Quarter: 2008Q4

REPORT INFORMATION
  Report Type: 
  Country: None (occurrence: None)
  Receive Date: 20081226
  Receipt Date: 20081212
  Transmission Date: 20090506
  Serious: Yes (Other)
  Sender: FDA-Public Use
  Company Number: US-MERCK-0804USA01987

PATIENT
  Age: 65 Year
  Sex: Male
  Weight: 91 kg

DRUGS (4)
  1. SINGULAIR [Suspect]
     Indication: RHINITIS ALLERGIC
     Route: 048
     Dates: start: 20060101
  2. ALLERGENIC EXTRACT [Concomitant]
     Indication: RHINITIS ALLERGIC
     Route: 048
     Dates: start: 20060201
  3. ALLEGRA [Concomitant]
     Indication: RHINITIS ALLERGIC
     Route: 065
     Dates: start: 20060101
  4. NASONEX [Concomitant]
     Indication: RHINITIS ALLERGIC
     Dates: start: 20060101

REACTIONS (8)
  - DEPRESSION [None]
  - DISSOCIATION [None]
  - DYSTHYMIC DISORDER [None]
  - EMOTIONAL DISORDER [None]
  - FATIGUE [None]
  - STRESS [None]
  - SUICIDAL IDEATION [None]
  - THINKING ABNORMAL [None]
